FAERS Safety Report 7960644-7 (Version None)
Quarter: 2011Q4

REPORT INFORMATION
  Report Type: 
  Country: None (occurrence: None)
  Receive Date: 20111206
  Receipt Date: 20111128
  Transmission Date: 20120403
  Serious: Yes (Hospitalization)
  Sender: FDA-Public Use
  Company Number: US-ASTRAZENECA-2011SE49540

PATIENT
  Age: 62 Year
  Sex: Male

DRUGS (2)
  1. BUDESONIDE [Suspect]
     Route: 055
  2. PROVENTIL [Concomitant]

REACTIONS (2)
  - EYE DISORDER [None]
  - CATARACT [None]
